FAERS Safety Report 10175732 (Version 2)
Quarter: 2014Q2

REPORT INFORMATION
  Report Type: Spontaneous
  Country: US (occurrence: US)
  Receive Date: 20140516
  Receipt Date: 20140611
  Transmission Date: 20141212
  Serious: Yes (Other)
  Sender: FDA-Public Use
  Company Number: US-JNJFOC-20140507121

PATIENT
  Age: 53 Year
  Sex: Male
  Weight: 113.38 kg

DRUGS (9)
  1. NICOTROL INHALER [Suspect]
     Indication: CHRONIC OBSTRUCTIVE PULMONARY DISEASE
     Dosage: FOUR CARTRIDGES
     Route: 055
     Dates: start: 20140414, end: 20140420
  2. NICOTROL INHALER [Suspect]
     Indication: CHRONIC OBSTRUCTIVE PULMONARY DISEASE
     Dosage: SIX CARTRIDGES
     Route: 055
     Dates: start: 20140410, end: 20140413
  3. PHENELZINE SULFATE [Concomitant]
     Indication: DEPRESSION
     Route: 065
  4. ABILIFY [Concomitant]
     Indication: PRODUCT USED FOR UNKNOWN INDICATION
     Route: 065
  5. KLONOPIN [Concomitant]
     Indication: PRODUCT USED FOR UNKNOWN INDICATION
     Route: 065
  6. METOPROLOL TARTRATE [Concomitant]
     Indication: PRODUCT USED FOR UNKNOWN INDICATION
     Route: 065
  7. DIPHENOXYLATE W/ATROPINE SULFATE [Concomitant]
     Indication: ABDOMINAL DISCOMFORT
     Route: 065
  8. RANITIDINE [Concomitant]
     Indication: PRODUCT USED FOR UNKNOWN INDICATION
     Route: 065
  9. CHLORASEPTIC [Concomitant]
     Indication: OROPHARYNGEAL PAIN
     Dosage: COUPLE OF SPRAYS THREE-FOUR TIMES A DAY
     Route: 065

REACTIONS (9)
  - Lip and/or oral cavity cancer [Not Recovered/Not Resolved]
  - Oropharyngeal pain [Not Recovered/Not Resolved]
  - Oral discomfort [Not Recovered/Not Resolved]
  - Stomatitis [Unknown]
  - Dysphagia [Unknown]
  - Pain [Unknown]
  - Weight decreased [Unknown]
  - Ulcer haemorrhage [Not Recovered/Not Resolved]
  - Oral pain [Not Recovered/Not Resolved]
